FAERS Safety Report 5086211-3 (Version None)
Quarter: 2006Q3

REPORT INFORMATION
  Report Type: 
  Country: None (occurrence: None)
  Receive Date: 20060818
  Receipt Date: 20060802
  Transmission Date: 20061208
  Serious: Yes (Death)
  Sender: FDA-Public Use
  Company Number: 227772

PATIENT
  Age: 74 Year
  Sex: Male

DRUGS (6)
  1. RAPTIVA [Suspect]
     Indication: PSORIASIS
     Dosage: 1MG/KG, 1/WEEK, SUBCUTANEOUS
     Route: 058
     Dates: start: 20060519
  2. METFORMIN [Concomitant]
  3. GLYBURIDE [Concomitant]
  4. AVANDIA [Concomitant]
  5. VASOTEC [Concomitant]
  6. ASPIRIN [Concomitant]

REACTIONS (2)
  - ARTERIOSCLEROSIS [None]
  - WEIGHT DECREASED [None]
